FAERS Safety Report 8273445 (Version 2)
Quarter: 2012Q4

REPORT INFORMATION
  Report Type: Report from Study
  Country: JP (occurrence: JP)
  Receive Date: 20111202
  Receipt Date: 20121218
  Transmission Date: 20130627
  Serious: Yes (Hospitalization)
  Sender: FDA-Public Use
  Company Number: JP-ABBOTT-11P-087-0878129-00

PATIENT
  Age: 27 Year
  Sex: Female
  Weight: 47.5 kg

DRUGS (7)
  1. HUMIRA 40 MG/ 0.8 ML PRE-FILLED SYRINGE [Suspect]
     Indication: CROHN^S DISEASE
     Route: 058
     Dates: start: 20101222, end: 20101222
  2. HUMIRA 40 MG/ 0.8 ML PRE-FILLED SYRINGE [Suspect]
     Dates: start: 20110106, end: 20110106
  3. HUMIRA 40 MG/ 0.8 ML PRE-FILLED SYRINGE [Suspect]
     Dates: start: 20110120, end: 20110414
  4. MESALAZINE [Concomitant]
     Indication: CROHN^S DISEASE
     Route: 048
  5. HERBAL MEDICINE (DAIKENCHUTO) [Concomitant]
     Indication: CROHN^S DISEASE
     Route: 048
     Dates: start: 20110120, end: 20110428
  6. FERROUS SULFATE HYDRATE [Concomitant]
     Indication: ANAEMIA
     Route: 048
     Dates: end: 20110105
  7. NIZATIDINE [Concomitant]
     Indication: PRODUCT USED FOR UNKNOWN INDICATION
     Route: 048

REACTIONS (2)
  - Intestinal obstruction [Recovered/Resolved]
  - Abdominal distension [Unknown]
